FAERS Safety Report 10690130 (Version 2)
Quarter: 2015Q1

REPORT INFORMATION
  Report Type: Spontaneous
  Country: US (occurrence: US)
  Receive Date: 20150105
  Receipt Date: 20150109
  Transmission Date: 20150720
  Serious: No
  Sender: FDA-Public Use
  Company Number: US-009507513-1412USA009819

PATIENT
  Sex: Female
  Weight: 56.69 kg

DRUGS (1)
  1. MIRALAX [Suspect]
     Active Substance: POLYETHYLENE GLYCOL 3350
     Indication: HAEMORRHOID OPERATION
     Dosage: 17 G, QD
     Route: 048
     Dates: start: 20080129

REACTIONS (4)
  - Underdose [Unknown]
  - Product use issue [Unknown]
  - Product taste abnormal [Unknown]
  - Incorrect drug administration duration [Unknown]
